FAERS Safety Report 4323183-0 (Version None)
Quarter: 2004Q1

REPORT INFORMATION
  Report Type: 
  Country: None (occurrence: None)
  Receive Date: 20040322
  Receipt Date: 20040308
  Transmission Date: 20041129
  Serious: Yes (Other)
  Sender: FDA-Public Use
  Company Number: 2004002690

PATIENT
  Age: 63 Year
  Sex: Male

DRUGS (8)
  1. TIKOSYN [Suspect]
     Indication: ARRHYTHMIA
     Dosage: 1000 MCG (BID) ORAL
     Route: 048
     Dates: start: 20030301
  2. TIKOSYN [Suspect]
     Indication: CARDIAC FIBRILLATION
     Dosage: 1000 MCG (BID) ORAL
     Route: 048
     Dates: start: 20030301
  3. TIKOSYN [Suspect]
     Indication: HEART RATE INCREASED
     Dosage: 1000 MCG (BID) ORAL
     Route: 048
     Dates: start: 20030301
  4. PREDNISONE [Suspect]
     Indication: PERICARDIAL EFFUSION
     Dates: start: 20030101
  5. WARFARIN SODIUM [Concomitant]
  6. FOLIC ACID [Concomitant]
  7. TEMAZEPAM [Concomitant]
  8. CENTRUM (VITAMINS NOS, MINERALS NOS) [Concomitant]

REACTIONS (11)
  - ACTIVITIES OF DAILY LIVING IMPAIRED [None]
  - ARRHYTHMIA [None]
  - CARDIAC FIBRILLATION [None]
  - EXTRASYSTOLES [None]
  - FATIGUE [None]
  - HEART RATE IRREGULAR [None]
  - INCREASED APPETITE [None]
  - NASOPHARYNGITIS [None]
  - PERICARDIAL EFFUSION [None]
  - TACHYCARDIA [None]
  - WEIGHT INCREASED [None]
